FAERS Safety Report 9376262 (Version 3)
Quarter: 2013Q3

REPORT INFORMATION
  Report Type: Report from Study
  Country: US (occurrence: US)
  Receive Date: 20130701
  Receipt Date: 20130808
  Transmission Date: 20140515
  Serious: Yes (Hospitalization)
  Sender: FDA-Public Use
  Company Number: US-ROCHE-1243039

PATIENT
  Age: 83 Year
  Sex: Female

DRUGS (2)
  1. RITUXAN [Suspect]
     Indication: NON-HODGKIN^S LYMPHOMA
     Route: 042
     Dates: start: 2012
  2. RITUXAN [Suspect]
     Route: 042
     Dates: start: 20130625

REACTIONS (6)
  - Muscular weakness [Not Recovered/Not Resolved]
  - Abasia [Recovering/Resolving]
  - Fall [Unknown]
  - Transient ischaemic attack [Recovering/Resolving]
  - Urinary tract infection [Recovered/Resolved]
  - Non-Hodgkin^s lymphoma recurrent [Not Recovered/Not Resolved]
